FAERS Safety Report 16645269 (Version 3)
Quarter: 2020Q4

REPORT INFORMATION
  Report Type: Spontaneous
  Country: US (occurrence: US)
  Receive Date: 20190729
  Receipt Date: 20201119
  Transmission Date: 20210113
  Serious: Yes (Other)
  Sender: FDA-Public Use
  Company Number: US-GLAXOSMITHKLINE-US2019GSK136031

PATIENT
  Sex: Male

DRUGS (3)
  1. PANTOPRAZOLE [Suspect]
     Active Substance: PANTOPRAZOLE
     Indication: ULCER
     Dosage: 40 MG, QD
     Route: 065
  2. PREVACID [Suspect]
     Active Substance: LANSOPRAZOLE
     Indication: ULCER
     Dosage: 30 MG, QD
     Route: 065
  3. PREVACID [Suspect]
     Active Substance: LANSOPRAZOLE
     Indication: GASTROOESOPHAGEAL REFLUX DISEASE

REACTIONS (14)
  - Dialysis [Not Recovered/Not Resolved]
  - Nephrogenic anaemia [Unknown]
  - Nocturia [Unknown]
  - Hyperparathyroidism secondary [Unknown]
  - Chronic kidney disease-mineral and bone disorder [Unknown]
  - Renal cyst [Unknown]
  - End stage renal disease [Not Recovered/Not Resolved]
  - Renal injury [Unknown]
  - Hypertensive nephropathy [Unknown]
  - Azotaemia [Unknown]
  - Diabetic nephropathy [Unknown]
  - Chronic kidney disease [Not Recovered/Not Resolved]
  - Haemodialysis [Unknown]
  - Device dependence [Unknown]
